FAERS Safety Report 9302866 (Version 1)
Quarter: 2013Q2

REPORT INFORMATION
  Report Type: Spontaneous
  Country: US (occurrence: US)
  Receive Date: 20130522
  Receipt Date: 20130522
  Transmission Date: 20140414
  Serious: Yes (Hospitalization)
  Sender: FDA-Public Use
  Company Number: US-BAYER-2013-061988

PATIENT
  Age: 31 Year
  Sex: Female
  Weight: 94.79 kg

DRUGS (9)
  1. YAZ [Suspect]
  2. WELLBUTRIN [Concomitant]
     Indication: DEPRESSION
     Dosage: 300 MG, UNK
     Dates: end: 20100418
  3. ADIPEX [Concomitant]
     Indication: WEIGHT DECREASED
     Dosage: 30 MG, UNK
     Dates: end: 20100418
  4. FLUOXETINE [Concomitant]
     Indication: PREMENSTRUAL SYNDROME
     Dosage: 10 MG, UNK
     Dates: end: 20100418
  5. KCL [Concomitant]
     Indication: MUSCLE SPASMS
     Dosage: 10 MEQ, UNK
     Dates: end: 20100418
  6. DYAZIDE [Concomitant]
     Indication: FLUID RETENTION
     Dosage: 37.5/25
     Dates: end: 20100418
  7. MOTRIN [Concomitant]
     Dosage: 800 MG, UNK
     Dates: start: 20100404
  8. VICODIN [Concomitant]
     Dosage: 5/500 MG
     Dates: end: 20100511
  9. LEVAQUIN [Concomitant]
     Indication: PNEUMONIA

REACTIONS (1)
  - Pulmonary embolism [Recovered/Resolved]
